FAERS Safety Report 15361911 (Version 1)
Quarter: 2018Q3

REPORT INFORMATION
  Report Type: Spontaneous
  Country: US (occurrence: US)
  Receive Date: 20180907
  Receipt Date: 20180907
  Transmission Date: 20181010
  Serious: Yes (Hospitalization, Other)
  Sender: FDA-Public Use
  Company Number: US-ELI_LILLY_AND_COMPANY-US201808014736

PATIENT
  Sex: Female

DRUGS (1)
  1. HUMALOG [Suspect]
     Active Substance: INSULIN LISPRO
     Indication: PRODUCT USED FOR UNKNOWN INDICATION
     Dosage: UNK, UNKNOWN
     Route: 058

REACTIONS (7)
  - Haematemesis [Unknown]
  - Pleural effusion [Unknown]
  - Precancerous cells present [Unknown]
  - Myocardial infarction [Unknown]
  - Pericardial effusion [Unknown]
  - Large intestinal haemorrhage [Unknown]
  - Polyp [Unknown]

NARRATIVE: CASE EVENT DATE: 201801
